FAERS Safety Report 8246518-5 (Version None)
Quarter: 2012Q1

REPORT INFORMATION
  Report Type: 
  Country: None (occurrence: None)
  Receive Date: 20120330
  Receipt Date: 20120319
  Transmission Date: 20120608
  Serious: Yes (Hospitalization)
  Sender: FDA-Public Use
  Company Number: FR-BRISTOL-MYERS SQUIBB COMPANY-16481020

PATIENT
  Age: 68 Year
  Sex: Female

DRUGS (12)
  1. PANTOPRAZOLE [Concomitant]
     Dosage: TABS
     Route: 048
     Dates: end: 20111107
  2. LEVOTHYROXINE SODIUM [Concomitant]
     Dosage: TAB
     Route: 048
     Dates: end: 20111107
  3. LITHIUM CARBONATE [Suspect]
     Indication: BIPOLAR DISORDER
     Dosage: 2DF=250MG
     Route: 048
     Dates: end: 20111107
  4. OXAZEPAM [Concomitant]
     Dosage: TAB 0.50 DOSAGE FORM TWO TIMES AND 1 DOSAGE FORM ONE TIME
     Route: 048
     Dates: end: 20111107
  5. ACETAMINOPHEN [Suspect]
     Route: 048
     Dates: end: 20111107
  6. POLYETHYLENE GLYCOL [Suspect]
     Dosage: PRODUCT STRENGTH IS 4000
     Route: 048
     Dates: end: 20111029
  7. KETOPROFEN [Suspect]
     Dosage: 1DF=100MG TAB
     Route: 048
     Dates: end: 20111107
  8. HALDOL [Concomitant]
     Dosage: 2MG/ML
     Route: 048
     Dates: end: 20111107
  9. AMARYL [Concomitant]
     Route: 048
     Dates: end: 20111107
  10. ROCEPHIN [Concomitant]
     Route: 048
     Dates: start: 20111028, end: 20111101
  11. GLUCOPHAGE [Suspect]
     Route: 048
     Dates: end: 20111107
  12. VASTAREL [Concomitant]
     Route: 048
     Dates: end: 20111107

REACTIONS (2)
  - METABOLIC ACIDOSIS [None]
  - RENAL FAILURE ACUTE [None]
